FAERS Safety Report 7010963-6 (Version None)
Quarter: 2010Q3

REPORT INFORMATION
  Report Type: 
  Country: None (occurrence: None)
  Receive Date: 20100923
  Receipt Date: 20070604
  Transmission Date: 20110219
  Serious: No
  Sender: FDA-Public Use
  Company Number: HQWYE517307JUN07

PATIENT
  Sex: Male

DRUGS (7)
  1. EFFEXOR XR [Suspect]
     Indication: DEPRESSION
     Route: 048
     Dates: start: 20020101, end: 20070201
  2. EFFEXOR XR [Suspect]
     Indication: ANXIETY
     Dosage: ^GRADUALLY TAPERED^
     Dates: start: 20070301, end: 20070401
  3. EFFEXOR XR [Suspect]
     Route: 048
     Dates: start: 20070501, end: 20070531
  4. CAFFEINE [Suspect]
  5. CLONIDINE [Concomitant]
  6. WELLBUTRIN XL [Concomitant]
  7. ALLOPURINOL [Concomitant]

REACTIONS (6)
  - CRYING [None]
  - DRUG WITHDRAWAL SYNDROME [None]
  - HEADACHE [None]
  - JAW DISORDER [None]
  - LIBIDO DISORDER [None]
  - VERTIGO [None]
